FAERS Safety Report 6652175-1 (Version None)
Quarter: 2010Q1

REPORT INFORMATION
  Report Type: 
  Country: None (occurrence: None)
  Receive Date: 20100325
  Receipt Date: 20100322
  Transmission Date: 20100710
  Serious: Yes (Congenital Anomaly)
  Sender: FDA-Public Use
  Company Number: CA-WYE-G05455010

PATIENT

DRUGS (3)
  1. PRISTIQ [Suspect]
     Route: 064
  2. FOLIC ACID [Concomitant]
  3. MATERNA [Concomitant]

REACTIONS (2)
  - DRUG EXPOSURE DURING PREGNANCY [None]
  - RENAL APLASIA [None]
